FAERS Safety Report 8911333 (Version 2)
Quarter: 2013Q4

REPORT INFORMATION
  Report Type: Spontaneous
  Country: US (occurrence: US)
  Receive Date: 20121116
  Receipt Date: 20131217
  Transmission Date: 20140711
  Serious: No
  Sender: FDA-Public Use
  Company Number: US-GLAXOSMITHKLINE-A0997691A

PATIENT
  Age: 63 Year
  Sex: Female

DRUGS (2)
  1. VOTRIENT [Suspect]
     Indication: RENAL CELL CARCINOMA
     Dosage: 200MG UNKNOWN
     Route: 048
     Dates: start: 20121002
  2. AMLODIPINE [Concomitant]

REACTIONS (5)
  - Skin depigmentation [Unknown]
  - Lung disorder [Unknown]
  - Dysgeusia [Unknown]
  - Fatigue [Unknown]
  - Sinusitis [Unknown]
